FAERS Safety Report 6391237-3 (Version None)
Quarter: 2009Q4

REPORT INFORMATION
  Report Type: 
  Country: None (occurrence: None)
  Receive Date: 20091007
  Receipt Date: 20090924
  Transmission Date: 20100525
  Serious: Yes (Other)
  Sender: FDA-Public Use
  Company Number: US-TYCO HEALTHCARE/MALLINCKRODT-T200901800

PATIENT
  Sex: Male

DRUGS (3)
  1. OXYCODONE [Suspect]
     Dosage: UNK
     Dates: start: 20070901, end: 20070901
  2. BENZODIAZEPINE DERIVATIVES [Suspect]
     Dosage: UNK
     Dates: start: 20070901, end: 20070901
  3. ALPRAZOLAM [Suspect]
     Dosage: UNK
     Dates: start: 20070901, end: 20070901

REACTIONS (5)
  - ANOXIC ENCEPHALOPATHY [None]
  - COMA [None]
  - CONVULSION [None]
  - DRUG ABUSE [None]
  - DRUG DIVERSION [None]
